FAERS Safety Report 26022526 (Version 1)
Quarter: 2025Q4

REPORT INFORMATION
  Report Type: Spontaneous
  Country: US (occurrence: US)
  Receive Date: 20251110
  Receipt Date: 20251110
  Transmission Date: 20260117
  Serious: Yes (Other)
  Sender: AMGEN
  Company Number: US-AMGEN-USASP2025218890

PATIENT
  Age: 63 Year
  Sex: Female

DRUGS (8)
  1. PREDNISONE [Suspect]
     Active Substance: PREDNISONE
     Indication: Pemphigoid
     Dosage: UNK, PRIOR/ PREVIOUS TREATMENT
     Route: 065
  2. PREDNISONE [Suspect]
     Active Substance: PREDNISONE
     Dosage: 20 MILLIGRAM, QD, BEGINNING STUDY DAY 3
     Route: 048
  3. PREDNISONE [Suspect]
     Active Substance: PREDNISONE
     Dosage: 60 MILLIGRAM, QD, SEVEN DAYS
     Route: 048
  4. DOXYCYCLINE [Concomitant]
     Active Substance: DOXYCYCLINE
     Indication: Pemphigoid
  5. METHOTREXATE [Concomitant]
     Active Substance: METHOTREXATE
     Indication: Pemphigoid
  6. TRIAMCINOLONE [Concomitant]
     Active Substance: TRIAMCINOLONE
     Indication: Pemphigoid
     Route: 061
  7. IXEKIZUMAB [Concomitant]
     Active Substance: IXEKIZUMAB
     Indication: Pemphigoid
     Dosage: 160 MILLIGRAM AT WEEK 0
     Route: 058
  8. IXEKIZUMAB [Concomitant]
     Active Substance: IXEKIZUMAB
     Dosage: 80 MILLIGRAM AT WEEKS 2, 4, 6, 8, 10, AND 12
     Route: 058

REACTIONS (2)
  - Pemphigoid [Unknown]
  - Off label use [Unknown]
